FAERS Safety Report 6192323-3 (Version None)
Quarter: 2009Q2

REPORT INFORMATION
  Report Type: 
  Country: None (occurrence: None)
  Receive Date: 20090515
  Receipt Date: 20090430
  Transmission Date: 20091009
  Serious: Yes (Life-Threatening, Hospitalization, Disabling)
  Sender: FDA-Public Use
  Company Number: DE-GENENTECH-283118

PATIENT
  Sex: Female

DRUGS (9)
  1. RITUXIMAB [Suspect]
     Indication: RHEUMATOID ARTHRITIS
     Dosage: UNK
     Route: 065
     Dates: start: 20090216
  2. HYDROCORTISONE [Concomitant]
     Indication: RHEUMATOID ARTHRITIS
     Dosage: 200 MG, QD
     Dates: start: 20090302, end: 20090412
  3. PREDNISOLONE [Concomitant]
     Indication: DRUG USE FOR UNKNOWN INDICATION
     Dosage: 15 MG, QD
     Dates: start: 20090412
  4. BISOPROLOL [Concomitant]
     Indication: CARDIAC FAILURE
     Dosage: 1.25 UNK, BID
     Dates: start: 20090302
  5. ESOMEPRAZOLE MAGNESIUM [Concomitant]
     Indication: PROPHYLAXIS
     Dosage: 20 UNK, QD
     Dates: start: 20090302
  6. RAMIPRIL [Concomitant]
     Indication: CARDIAC FAILURE
     Dosage: 1.25 UNK, BID
     Dates: start: 20090302
  7. TORSEMIDE [Concomitant]
     Indication: CARDIAC FAILURE
     Dosage: 20 UNK, BID
     Dates: start: 20090302
  8. SULFAMETHOXAZOLE AND TRIMETHOPRIM [Concomitant]
     Indication: INFECTION PROPHYLAXIS
     Dosage: 1 TABLET, 3/WEEK
     Dates: start: 20090302
  9. MIRTAZAPINE [Concomitant]
     Indication: PHANTOM PAIN
     Dosage: 15 MG, QD
     Dates: start: 20090406

REACTIONS (14)
  - AMPUTATION [None]
  - CANDIDIASIS [None]
  - CARDIAC TAMPONADE [None]
  - DRY GANGRENE [None]
  - ENTEROCOCCAL INFECTION [None]
  - HERPES SIMPLEX [None]
  - METABOLIC ACIDOSIS [None]
  - MULTI-ORGAN FAILURE [None]
  - NECROSIS [None]
  - PLEURAL EFFUSION [None]
  - POLYNEUROPATHY [None]
  - RENAL FAILURE ACUTE [None]
  - SEPTIC SHOCK [None]
  - STAPHYLOCOCCAL INFECTION [None]
